FAERS Safety Report 7536735-1 (Version None)
Quarter: 2011Q2

REPORT INFORMATION
  Report Type: 
  Country: None (occurrence: None)
  Receive Date: 20110609
  Receipt Date: 20110603
  Transmission Date: 20111010
  Serious: Yes (Hospitalization)
  Sender: FDA-Public Use
  Company Number: B0724824A

PATIENT
  Age: 63 Year
  Sex: Male

DRUGS (1)
  1. AVANDIA [Suspect]
     Dosage: 4MG TWICE PER DAY
     Route: 048
     Dates: start: 20030701, end: 20031201

REACTIONS (7)
  - CONVULSION [None]
  - CARDIAC FAILURE CONGESTIVE [None]
  - HEADACHE [None]
  - MYOCARDIAL INFARCTION [None]
  - VISION BLURRED [None]
  - BALANCE DISORDER [None]
  - SCAR [None]
